FAERS Safety Report 25829238 (Version 1)
Quarter: 2025Q3

REPORT INFORMATION
  Report Type: Report from Study
  Country: GB (occurrence: GB)
  Receive Date: 20250922
  Receipt Date: 20250922
  Transmission Date: 20251021
  Serious: Yes (Other)
  Sender: TEVA
  Company Number: GB-TEVA-VS-3373265

PATIENT
  Age: 44 Year
  Sex: Female

DRUGS (1)
  1. AJOVY [Suspect]
     Active Substance: FREMANEZUMAB-VFRM
     Indication: Migraine
     Dosage: STRENGTH:  225MG/1.5ML
     Route: 058

REACTIONS (1)
  - Pulmonary embolism [Recovered/Resolved]
